FAERS Safety Report 15651448 (Version 4)
Quarter: 2018Q4

REPORT INFORMATION
  Report Type: Report from Study
  Country: US (occurrence: US)
  Receive Date: 20181123
  Receipt Date: 20181227
  Transmission Date: 20190205
  Serious: Yes (Hospitalization, Other)
  Sender: FDA-Public Use
  Company Number: US-SA-2018SA320142

PATIENT
  Age: 51 Year
  Sex: Female

DRUGS (29)
  1. LIOTHYRONINE [Concomitant]
     Active Substance: LIOTHYRONINE
  2. OCUVITE [ASCORBIC ACID;BETACAROTENE;COPPER;TOCOFERSOLAN;ZINC] [Concomitant]
  3. TROSPIUM [Concomitant]
     Active Substance: TROSPIUM
  4. VIACTIV [CALCIUM] [Concomitant]
  5. VITAMIN B COMPLEX [Concomitant]
     Active Substance: CYANOCOBALAMIN\DEXPANTHENOL\NIACINAMIDE\PYRIDOXINE HYDROCHLORIDE\RIBOFLAVIN 5^-PHOSPHATE SODIUM\THIAMINE HYDROCHLORIDE\VITAMIN B COMPLEX
  6. TERIFLUNOMIDE. [Suspect]
     Active Substance: TERIFLUNOMIDE
     Dosage: 14 MG, QD
     Route: 048
     Dates: start: 20180924
  7. DILAUDID [Concomitant]
     Active Substance: HYDROMORPHONE HYDROCHLORIDE
  8. HORSE CHESTNUT [AESCULUS HIPPOCASTANUM] [Concomitant]
  9. FLUOXETINE [Concomitant]
     Active Substance: FLUOXETINE HYDROCHLORIDE
  10. FOLIC ACID. [Concomitant]
     Active Substance: FOLIC ACID
  11. NORETHINDRONE [NORETHISTERONE] [Concomitant]
  12. SYNTHROID [Concomitant]
     Active Substance: LEVOTHYROXINE SODIUM
  13. AMITRIPTYLINE [Concomitant]
     Active Substance: AMITRIPTYLINE
  14. VITAMIN D3 [Concomitant]
     Active Substance: CHOLECALCIFEROL
  15. ARGININE [Concomitant]
     Active Substance: ARGININE
  16. FIBER CHOICE PLUS CALCIUM [Concomitant]
  17. MAGNESIUM [Concomitant]
     Active Substance: MAGNESIUM
  18. ZOMIG [Concomitant]
     Active Substance: ZOLMITRIPTAN
  19. TIZANIDINE. [Concomitant]
     Active Substance: TIZANIDINE
  20. TYROSINE [Concomitant]
     Active Substance: TYROSINE
  21. VITAMIN C [Concomitant]
     Active Substance: ASCORBIC ACID
  22. BACLOFEN. [Concomitant]
     Active Substance: BACLOFEN
  23. FISH OIL [Concomitant]
     Active Substance: FISH OIL
  24. PHENYLEPHRINE [Concomitant]
     Active Substance: PHENYLEPHRINE\PHENYLEPHRINE HYDROCHLORIDE
  25. VITAMIN E [Concomitant]
     Active Substance: .ALPHA.-TOCOPHEROL
  26. WARFARIN [Concomitant]
     Active Substance: WARFARIN
  27. TERIFLUNOMIDE. [Suspect]
     Active Substance: TERIFLUNOMIDE
     Indication: MULTIPLE SCLEROSIS
     Dosage: 14 MG, QD
     Route: 048
     Dates: start: 20180914
  28. CALCIUM [Concomitant]
     Active Substance: CALCIUM
  29. NITROFURANTOIN. [Concomitant]
     Active Substance: NITROFURANTOIN

REACTIONS (12)
  - Abnormal faeces [Recovered/Resolved]
  - Therapeutic response unexpected [Unknown]
  - Urinary tract infection [Unknown]
  - Diarrhoea [Unknown]
  - Abdominal distension [Unknown]
  - Vaginal infection [Unknown]
  - Migraine [Unknown]
  - Bladder catheterisation [Unknown]
  - Hospitalisation [Recovered/Resolved]
  - Urinary incontinence [Unknown]
  - Laboratory test abnormal [Unknown]
  - Constipation [Recovered/Resolved]

NARRATIVE: CASE EVENT DATE: 201809
